FAERS Safety Report 13819396 (Version 1)
Quarter: 2017Q3

REPORT INFORMATION
  Report Type: Spontaneous
  Country: CA (occurrence: CA)
  Receive Date: 20170801
  Receipt Date: 20170801
  Transmission Date: 20171127
  Serious: Yes (Hospitalization)
  Sender: FDA-Public Use
  Company Number: CA-HLSUS-2017-CA-000804

PATIENT
  Age: 32 Year
  Sex: Female
  Weight: 132 kg

DRUGS (2)
  1. CLOZARIL [Suspect]
     Active Substance: CLOZAPINE
     Indication: SCHIZOPHRENIA
     Dosage: 400 MG 1 EVERY 1 DAY
     Route: 048
  2. PERPHENAZINE. [Concomitant]
     Active Substance: PERPHENAZINE

REACTIONS (7)
  - Asthenia [Recovered/Resolved]
  - C-reactive protein increased [Recovered/Resolved]
  - Sinus tachycardia [Recovered/Resolved]
  - Red blood cell sedimentation rate increased [Recovered/Resolved]
  - Nausea [Recovered/Resolved]
  - Troponin increased [Recovered/Resolved]
  - Myalgia [Recovered/Resolved]
